FAERS Safety Report 4774942-1 (Version None)
Quarter: 2005Q3

REPORT INFORMATION
  Report Type: 
  Country: None (occurrence: None)
  Receive Date: 20050920
  Receipt Date: 20050907
  Transmission Date: 20060218
  Serious: Yes (Disabling, Other)
  Sender: FDA-Public Use
  Company Number: 2005125791

PATIENT
  Age: 60 Year
  Sex: Female
  Weight: 86 kg

DRUGS (4)
  1. LYRICA [Suspect]
     Indication: FACIAL PAIN
     Dosage: 300 MG (150 MG, 2 IN 1 D), ORAL
     Route: 048
     Dates: start: 20050801
  2. PAROXETINE HCL [Concomitant]
  3. DIHYDROCODEINE (DHIHYDROCODEINE) [Concomitant]
  4. ACETAMINOPHEN [Concomitant]

REACTIONS (4)
  - DYSARTHRIA [None]
  - TRANSIENT ISCHAEMIC ATTACK [None]
  - URINARY INCONTINENCE [None]
  - VISION BLURRED [None]
